FAERS Safety Report 11773426 (Version 1)
Quarter: 2015Q4

REPORT INFORMATION
  Report Type: Spontaneous
  Country: US (occurrence: US)
  Receive Date: 20151124
  Receipt Date: 20151124
  Transmission Date: 20160304
  Serious: No
  Sender: FDA-Public Use
  Company Number: US-BAYER-2015-472349

PATIENT
  Age: 89 Year
  Sex: Female
  Weight: 58.96 kg

DRUGS (2)
  1. BAYER GENUINE ASPIRIN [Suspect]
     Active Substance: ASPIRIN
     Dosage: 1 DF, PRN
     Route: 048
  2. ALEVE [Suspect]
     Active Substance: NAPROXEN SODIUM
     Indication: SCIATICA
     Dosage: 1 DF, PRN
     Route: 048
     Dates: start: 20151118

REACTIONS (2)
  - Drug effect incomplete [None]
  - Product use issue [None]

NARRATIVE: CASE EVENT DATE: 201511
